FAERS Safety Report 23051062 (Version 1)
Quarter: 2023Q4

REPORT INFORMATION
  Report Type: Spontaneous
  Country: US (occurrence: US)
  Receive Date: 20231010
  Receipt Date: 20231010
  Transmission Date: 20240110
  Serious: No
  Sender: FDA-Public Use
  Company Number: US-SA-SAC20231006000926

PATIENT
  Sex: Female

DRUGS (3)
  1. DUPIXENT [Suspect]
     Active Substance: DUPILUMAB
     Indication: Dermatitis atopic
     Dosage: 300 MG, QOW
     Route: 058
     Dates: start: 202208
  2. ADBRY [Concomitant]
     Active Substance: TRALOKINUMAB-LDRM
     Dosage: 4 DF, 1X, SYRINGE
     Route: 058
  3. ADBRY [Concomitant]
     Active Substance: TRALOKINUMAB-LDRM
     Dosage: 2 DF, QOW, SYRINGE, MAINTENANCE DOSE
     Route: 058

REACTIONS (1)
  - Viral infection [Unknown]
